FAERS Safety Report 13800634 (Version 3)
Quarter: 2017Q3

REPORT INFORMATION
  Report Type: Report from Study
  Country: TW (occurrence: TW)
  Receive Date: 20170727
  Receipt Date: 20170825
  Transmission Date: 20171127
  Serious: Yes (Death, Hospitalization)
  Sender: FDA-Public Use
  Company Number: TW-ACTELION-A-CH2017-157037

PATIENT
  Age: 77 Year
  Sex: Female

DRUGS (10)
  1. ALDACTIN [Concomitant]
     Dosage: 25 MG, QD
     Route: 048
     Dates: end: 20170811
  2. PHYLLOCONTIN [Concomitant]
     Active Substance: AMINOPHYLLINE
     Dosage: 225 MG, Q12HRS
  3. CARTIA XT [Concomitant]
     Active Substance: DILTIAZEM HYDROCHLORIDE
     Dosage: 30 MG, TID
  4. BURINEX [Concomitant]
     Active Substance: BUMETANIDE
     Dosage: 0.5 MG, QD
  5. RADI K [Concomitant]
     Dosage: 595 MG, QD
  6. ELTROXIN [Concomitant]
     Active Substance: LEVOTHYROXINE
     Dosage: 50 ?G, QD
  7. VENTAVIS [Concomitant]
     Active Substance: ILOPROST
     Indication: PULMONARY ARTERIAL HYPERTENSION
     Dosage: 4 DF, QD
     Route: 055
     Dates: end: 20170725
  8. ADEMPAS [Concomitant]
     Active Substance: RIOCIGUAT
     Indication: PULMONARY ARTERIAL HYPERTENSION
     Dosage: 2.5 MG, TID
     Route: 048
     Dates: end: 20170811
  9. OPSUMIT [Suspect]
     Active Substance: MACITENTAN
     Indication: PULMONARY ARTERIAL HYPERTENSION
     Dosage: 10 MG, QD
     Route: 048
     Dates: start: 20170705, end: 20170811
  10. FLOLAN [Concomitant]
     Active Substance: EPOPROSTENOL SODIUM
     Indication: PULMONARY ARTERIAL HYPERTENSION
     Dosage: UNK
     Dates: end: 20170811

REACTIONS (8)
  - Pyrexia [Fatal]
  - Headache [Fatal]
  - Rhinorrhoea [Fatal]
  - Dyspnoea [Fatal]
  - Influenza [Fatal]
  - Productive cough [Fatal]
  - Pneumonia [Fatal]
  - Pulmonary oedema [Not Recovered/Not Resolved]

NARRATIVE: CASE EVENT DATE: 20170719
